FAERS Safety Report 11850896 (Version 1)
Quarter: 2015Q4

REPORT INFORMATION
  Report Type: Spontaneous
  Country: US (occurrence: US)
  Receive Date: 20151218
  Receipt Date: 20151218
  Transmission Date: 20160305
  Serious: No
  Sender: FDA-Public Use
  Company Number: US-JNJFOC-20150215958

PATIENT
  Age: 40 Year
  Sex: Male
  Weight: 124.74 kg

DRUGS (2)
  1. MENS ROGAINE EXTRA STRENGTH [Suspect]
     Active Substance: MINOXIDIL
     Route: 061
  2. MENS ROGAINE EXTRA STRENGTH [Suspect]
     Active Substance: MINOXIDIL
     Indication: HAIR GROWTH ABNORMAL
     Dosage: I USED A HEADFUL
     Route: 061
     Dates: end: 20150216

REACTIONS (2)
  - Alopecia [Unknown]
  - Drug ineffective [Unknown]
